FAERS Safety Report 10159600 (Version 2)
Quarter: 2014Q2

REPORT INFORMATION
  Report Type: Spontaneous
  Country: US (occurrence: US)
  Receive Date: 20140508
  Receipt Date: 20140508
  Transmission Date: 20141212
  Serious: Yes (Other)
  Sender: FDA-Public Use
  Company Number: US-GLAXOSMITHKLINE-A0866558A

PATIENT
  Age: 53 Year
  Sex: Female

DRUGS (35)
  1. TYKERB [Suspect]
     Indication: BREAST CANCER
     Dosage: 1250MG PER DAY
     Route: 048
     Dates: start: 20100331
  2. TAXOL [Suspect]
     Indication: BREAST CANCER
     Route: 065
     Dates: start: 201001
  3. HERCEPTIN [Suspect]
     Indication: BREAST CANCER
     Route: 065
     Dates: start: 201001, end: 201004
  4. RADIATION [Suspect]
     Indication: BREAST CANCER
     Route: 065
  5. METOPROLOL [Suspect]
     Indication: PRODUCT USED FOR UNKNOWN INDICATION
     Dosage: 25MG PER DAY
     Route: 065
     Dates: start: 201001, end: 2011
  6. ZOMETA [Suspect]
     Indication: PRODUCT USED FOR UNKNOWN INDICATION
  7. PAIN MEDICATION [Concomitant]
  8. VANQUISH [Concomitant]
  9. VITAMIN B12 [Concomitant]
  10. NORCO [Concomitant]
  11. L-ACETYL CARNITINE [Concomitant]
  12. COENZYME Q10 [Concomitant]
  13. COUMADIN [Concomitant]
  14. LYRICA [Concomitant]
  15. MELATONIN [Concomitant]
  16. ADDERALL [Concomitant]
  17. MULTIVITAMINS [Concomitant]
  18. VITAMIN B-100 [Concomitant]
  19. VITAMIN B12 [Concomitant]
  20. VITAMIN C [Concomitant]
  21. VITAMIN D3 [Concomitant]
  22. GINKO [Concomitant]
  23. ALOE VERA GEL [Concomitant]
  24. COCONUT OIL [Concomitant]
  25. OLIVE OIL [Concomitant]
  26. FISH OIL [Concomitant]
  27. OMEGA 3 FISH OIL [Concomitant]
  28. MILK THISTLE [Concomitant]
  29. GRAPE SEED [Concomitant]
  30. MAGNESIUM [Concomitant]
  31. PROBIOTIC [Concomitant]
  32. DOCOSAHEXAENOIC ACID [Concomitant]
  33. ALPHA LIPOIC ACID [Concomitant]
  34. BONE MEAL [Concomitant]
  35. DIETARY SUPPLEMENT [Concomitant]

REACTIONS (59)
  - Mental impairment [Not Recovered/Not Resolved]
  - Abasia [Not Recovered/Not Resolved]
  - Ejection fraction decreased [Recovered/Resolved]
  - Chest pain [Unknown]
  - Musculoskeletal pain [Not Recovered/Not Resolved]
  - Chest discomfort [Not Recovered/Not Resolved]
  - Dyspnoea [Not Recovered/Not Resolved]
  - Extrasystoles [Not Recovered/Not Resolved]
  - Diarrhoea [Not Recovered/Not Resolved]
  - Myalgia [Not Recovered/Not Resolved]
  - Neuropathy peripheral [Not Recovered/Not Resolved]
  - Heart rate irregular [Recovered/Resolved]
  - Adverse event [Unknown]
  - Fatigue [Not Recovered/Not Resolved]
  - Abdominal distension [Recovering/Resolving]
  - Nausea [Recovering/Resolving]
  - Vomiting [Recovering/Resolving]
  - Onychalgia [Recovering/Resolving]
  - Middle insomnia [Recovering/Resolving]
  - Palmar erythema [Recovering/Resolving]
  - Liver function test abnormal [Not Recovered/Not Resolved]
  - Hallucination [Recovered/Resolved]
  - Device failure [Not Recovered/Not Resolved]
  - Tooth extraction [Not Recovered/Not Resolved]
  - Blood lactate dehydrogenase increased [Not Recovered/Not Resolved]
  - Thyroid function test abnormal [Not Recovered/Not Resolved]
  - Body temperature decreased [Not Recovered/Not Resolved]
  - Renal function test abnormal [Not Recovered/Not Resolved]
  - Anaemia [Not Recovered/Not Resolved]
  - Somnolence [Not Recovered/Not Resolved]
  - Pain in extremity [Not Recovered/Not Resolved]
  - Arthralgia [Not Recovered/Not Resolved]
  - Pain [Not Recovered/Not Resolved]
  - Erythema [Not Recovered/Not Resolved]
  - Muscular weakness [Not Recovered/Not Resolved]
  - Hyperventilation [Not Recovered/Not Resolved]
  - Gait disturbance [Not Recovered/Not Resolved]
  - Ill-defined disorder [Not Recovered/Not Resolved]
  - Paraesthesia [Not Recovered/Not Resolved]
  - Hypoaesthesia [Not Recovered/Not Resolved]
  - Dry skin [Not Recovered/Not Resolved]
  - Anxiety [Not Recovered/Not Resolved]
  - Tension [Not Recovered/Not Resolved]
  - Panic attack [Not Recovered/Not Resolved]
  - Nasal ulcer [Not Recovered/Not Resolved]
  - Epistaxis [Not Recovered/Not Resolved]
  - Visual impairment [Not Recovered/Not Resolved]
  - Memory impairment [Recovered/Resolved]
  - Disturbance in attention [Not Recovered/Not Resolved]
  - Sleep disorder [Not Recovered/Not Resolved]
  - Dyspepsia [Not Recovered/Not Resolved]
  - Balance disorder [Not Recovered/Not Resolved]
  - Nasal congestion [Not Recovered/Not Resolved]
  - Cough [Not Recovered/Not Resolved]
  - Rash [Not Recovered/Not Resolved]
  - Feeling hot [Not Recovered/Not Resolved]
  - Lymphoedema [Not Recovered/Not Resolved]
  - Weight increased [Not Recovered/Not Resolved]
  - Muscle tightness [Not Recovered/Not Resolved]
